FAERS Safety Report 10435553 (Version 5)
Quarter: 2014Q4

REPORT INFORMATION
  Report Type: Spontaneous
  Country: US (occurrence: US)
  Receive Date: 20140908
  Receipt Date: 20141103
  Transmission Date: 20150528
  Serious: No
  Sender: FDA-Public Use
  Company Number: US-BIOGENIDEC-2014BI089467

PATIENT
  Age: 50 Year
  Sex: Female

DRUGS (5)
  1. ATENOLOL. [Concomitant]
     Active Substance: ATENOLOL
     Indication: URINARY TRACT INFECTION
  2. HCTZ [Concomitant]
     Active Substance: HYDROCHLOROTHIAZIDE
  3. LOSARTAN [Concomitant]
     Active Substance: LOSARTAN
     Indication: HYPERTENSION
  4. TECFIDERA [Suspect]
     Active Substance: DIMETHYL FUMARATE
     Indication: RELAPSING-REMITTING MULTIPLE SCLEROSIS
     Route: 048
     Dates: start: 20140729
  5. RANITIDINE [Concomitant]
     Active Substance: RANITIDINE\RANITIDINE HYDROCHLORIDE

REACTIONS (42)
  - Pain in extremity [Recovered/Resolved]
  - Urinary tract infection [Not Recovered/Not Resolved]
  - Fatigue [Unknown]
  - Vulvovaginal mycotic infection [Unknown]
  - Poor venous access [Recovered/Resolved]
  - Burning sensation [Recovered/Resolved]
  - Multiple sclerosis [Not Recovered/Not Resolved]
  - Fear [Unknown]
  - Malaise [Unknown]
  - Arthralgia [Unknown]
  - Hot flush [Recovered/Resolved]
  - Pain [Recovered/Resolved]
  - Depressed mood [Unknown]
  - Trichomoniasis [Unknown]
  - Musculoskeletal stiffness [Recovered/Resolved]
  - Back pain [Not Recovered/Not Resolved]
  - Upper respiratory tract infection [Not Recovered/Not Resolved]
  - Neuropathy peripheral [Unknown]
  - Headache [Not Recovered/Not Resolved]
  - Feeling abnormal [Unknown]
  - Nausea [Recovered/Resolved]
  - Bronchitis [Not Recovered/Not Resolved]
  - Bladder discomfort [Unknown]
  - Irritability [Unknown]
  - Gait disturbance [Unknown]
  - Impaired self-care [Unknown]
  - Respiratory tract congestion [Recovered/Resolved]
  - Musculoskeletal pain [Not Recovered/Not Resolved]
  - Balance disorder [Recovered/Resolved]
  - Blood pressure increased [Unknown]
  - Myalgia [Unknown]
  - Chest pain [Recovered/Resolved]
  - Peroneal nerve palsy [Not Recovered/Not Resolved]
  - Muscle tightness [Recovered/Resolved]
  - Middle ear effusion [Unknown]
  - Muscle spasms [Unknown]
  - Frustration [Unknown]
  - Chills [Unknown]
  - Contusion [Recovered/Resolved]
  - Micturition urgency [Unknown]
  - Somnolence [Unknown]
  - Feeling hot [Recovered/Resolved]

NARRATIVE: CASE EVENT DATE: 20140729
